FAERS Safety Report 17480874 (Version 2)
Quarter: 2020Q2

REPORT INFORMATION
  Report Type: Report from Study
  Country: None (occurrence: US)
  Receive Date: 20200301
  Receipt Date: 20200502
  Transmission Date: 20200713
  Serious: Yes (Other)
  Sender: FDA-Public Use
  Company Number: US-ABBVIE-19P-163-3175805-00

PATIENT
  Sex: Male

DRUGS (4)
  1. VITAMINS [Concomitant]
     Active Substance: VITAMINS
     Indication: PRODUCT USED FOR UNKNOWN INDICATION
  2. IMBRUVICA [Suspect]
     Active Substance: IBRUTINIB
     Indication: MANTLE CELL LYMPHOMA
     Route: 048
     Dates: start: 20190921
  3. IMBRUVICA [Suspect]
     Active Substance: IBRUTINIB
     Route: 048
     Dates: start: 20190927
  4. LISINOPRIL. [Concomitant]
     Active Substance: LISINOPRIL
     Indication: PROPHYLAXIS
     Route: 048

REACTIONS (9)
  - Pancreatic cyst [Unknown]
  - Blood cholesterol increased [Unknown]
  - Asthenia [Unknown]
  - Myalgia [Unknown]
  - Atrial fibrillation [Unknown]
  - Arthralgia [Unknown]
  - Muscular weakness [Unknown]
  - Diarrhoea [Unknown]
  - Fatigue [Unknown]
